FAERS Safety Report 10460915 (Version 1)
Quarter: 2014Q3

REPORT INFORMATION
  Report Type: Spontaneous
  Country: US (occurrence: None)
  Receive Date: 20140917
  Receipt Date: 20140917
  Transmission Date: 20150326
  Serious: No
  Sender: FDA-Public Use
  Company Number: None

PATIENT
  Sex: Female
  Weight: 107.5 kg

DRUGS (2)
  1. DULOXETINE 60MG ACTAVIS [Suspect]
     Active Substance: DULOXETINE
     Indication: DEPRESSION
     Dosage: 60 MG, 1 TIMES DAILY, ORAL
     Route: 048
     Dates: start: 201401
  2. DULOXETINE 60MG ACTAVIS [Suspect]
     Active Substance: DULOXETINE
     Indication: PAIN
     Dosage: 60 MG, 1 TIMES DAILY, ORAL
     Route: 048
     Dates: start: 201401

REACTIONS (6)
  - Fatigue [None]
  - Weight increased [None]
  - Product substitution issue [None]
  - Therapeutic response changed [None]
  - Nausea [None]
  - Dizziness [None]
